FAERS Safety Report 15242620 (Version 2)
Quarter: 2018Q3

REPORT INFORMATION
  Report Type: Spontaneous
  Country: DE (occurrence: DE)
  Receive Date: 20180806
  Receipt Date: 20180810
  Transmission Date: 20181010
  Serious: Yes (Other)
  Sender: FDA-Public Use
  Company Number: DE-TEVA-2018-DE-935264

PATIENT
  Sex: Female
  Weight: 70 kg

DRUGS (4)
  1. EUTHYROX [Concomitant]
     Active Substance: LEVOTHYROXINE SODIUM
     Indication: AUTOIMMUNE THYROIDITIS
  2. CICLOPIROX. [Suspect]
     Active Substance: CICLOPIROX
     Indication: ONYCHOMYCOSIS
     Route: 065
     Dates: start: 20160323, end: 20160918
  3. LOCERYL [Suspect]
     Active Substance: AMOROLFINE HYDROCHLORIDE
     Indication: ONYCHOMYCOSIS
     Route: 061
     Dates: start: 20160922, end: 201710
  4. VIGANTOLETTEN [Concomitant]
     Active Substance: CHOLECALCIFEROL
     Indication: VITAMIN D DEFICIENCY
     Route: 065

REACTIONS (15)
  - Dizziness [Recovering/Resolving]
  - Paralysis [Recovering/Resolving]
  - Drug ineffective [Not Recovered/Not Resolved]
  - Scab [Recovering/Resolving]
  - Nervous system disorder [Recovering/Resolving]
  - Neck pain [Recovered/Resolved]
  - Skin haemorrhage [Recovering/Resolving]
  - Muscle injury [Recovering/Resolving]
  - Condition aggravated [Recovering/Resolving]
  - Abdominal pain upper [Recovering/Resolving]
  - Fatigue [Recovering/Resolving]
  - Gait disturbance [Recovered/Resolved]
  - Skin exfoliation [Recovering/Resolving]
  - Neuromuscular pain [Recovering/Resolving]
  - Feeling abnormal [Recovering/Resolving]

NARRATIVE: CASE EVENT DATE: 2009
